FAERS Safety Report 23415519 (Version 3)
Quarter: 2025Q2

REPORT INFORMATION
  Report Type: Spontaneous
  Country: US (occurrence: US)
  Receive Date: 20240118
  Receipt Date: 20250506
  Transmission Date: 20250716
  Serious: Yes (Disabling, Other)
  Sender: CHATTEM
  Company Number: US-OPELLA-2024OHG000558

PATIENT

DRUGS (3)
  1. DOCUSATE SODIUM [Suspect]
     Active Substance: DOCUSATE SODIUM
     Indication: Product used for unknown indication
  2. SUBOXONE [Suspect]
     Active Substance: BUPRENORPHINE HYDROCHLORIDE\NALOXONE HYDROCHLORIDE
     Indication: Product used for unknown indication
  3. HERBALS\MITRAGYNINE [Suspect]
     Active Substance: HERBALS\MITRAGYNINE
     Indication: Product used for unknown indication

REACTIONS (12)
  - Loss of personal independence in daily activities [Unknown]
  - Anal injury [Unknown]
  - Haematochezia [Unknown]
  - Anal haemorrhage [Unknown]
  - Pain [Unknown]
  - Faeces hard [Unknown]
  - Sleep disorder [Unknown]
  - Discomfort [Unknown]
  - Migraine [Unknown]
  - Vomiting [Unknown]
  - Dizziness [Unknown]
  - Drug ineffective [Unknown]
